FAERS Safety Report 24582728 (Version 2)
Quarter: 2024Q4

REPORT INFORMATION
  Report Type: Spontaneous
  Country: US (occurrence: US)
  Receive Date: 20241106
  Receipt Date: 20241113
  Transmission Date: 20250115
  Serious: Yes (Other)
  Sender: CIPLA
  Company Number: US-CIPLA LTD.-2024US11930

PATIENT

DRUGS (1)
  1. TESTOSTERONE [Suspect]
     Active Substance: TESTOSTERONE
     Indication: Transgender hormonal therapy
     Dosage: 100 MILLIGRAM
     Route: 030
     Dates: start: 2021, end: 2023

REACTIONS (4)
  - Ovarian granulosa cell tumour [Recovered/Resolved]
  - Ovarian cancer recurrent [Recovered/Resolved]
  - Metastases to lymph nodes [Recovered/Resolved]
  - Metastases to vagina [Recovered/Resolved]

NARRATIVE: CASE EVENT DATE: 20230601
